FAERS Safety Report 9007471 (Version 1)
Quarter: 2013Q1

REPORT INFORMATION
  Report Type: Spontaneous
  Country: US (occurrence: US)
  Receive Date: 20130111
  Receipt Date: 20130111
  Transmission Date: 20140127
  Serious: Yes (Other)
  Sender: FDA-Public Use
  Company Number: US-009507513-0901USA02217

PATIENT
  Age: 49 Year
  Sex: Male
  Weight: 106.59 kg

DRUGS (1)
  1. SINGULAIR [Suspect]
     Indication: ASTHMA
     Dosage: 10 MG, QD
     Route: 048
     Dates: start: 20050101, end: 20071001

REACTIONS (2)
  - Negative thoughts [Recovered/Resolved]
  - Self-injurious ideation [Recovered/Resolved]
